FAERS Safety Report 11613963 (Version 2)
Quarter: 2015Q4

REPORT INFORMATION
  Report Type: Spontaneous
  Country: JP (occurrence: JP)
  Receive Date: 20151008
  Receipt Date: 20151112
  Transmission Date: 20160304
  Serious: Yes (Hospitalization, Other)
  Sender: FDA-Public Use
  Company Number: JP-GILEAD-2015-0175704

PATIENT
  Age: 65 Year
  Sex: Female

DRUGS (4)
  1. ENTECAVIR HYDRATE [Concomitant]
     Indication: HEPATITIS ACUTE
     Route: 065
  2. HEPSERA [Suspect]
     Active Substance: ADEFOVIR DIPIVOXIL
     Indication: CHRONIC HEPATITIS B
     Route: 048
  3. HEPSERA [Suspect]
     Active Substance: ADEFOVIR DIPIVOXIL
     Dosage: UNK
     Route: 048
  4. ENTECAVIR HYDRATE [Concomitant]
     Dosage: UNK

REACTIONS (7)
  - Lumbar vertebral fracture [Unknown]
  - Renal disorder [Recovering/Resolving]
  - Hyperphosphaturia [Unknown]
  - Fractured sacrum [Unknown]
  - Hypophosphataemia [Recovering/Resolving]
  - Fanconi syndrome acquired [Recovering/Resolving]
  - Rib fracture [Unknown]
